FAERS Safety Report 20899889 (Version 1)
Quarter: 2022Q2

REPORT INFORMATION
  Report Type: Spontaneous
  Country: US (occurrence: None)
  Receive Date: 20220531
  Receipt Date: 20220531
  Transmission Date: 20220721
  Serious: Yes (Hospitalization)
  Sender: FDA-Public Use
  Company Number: None

PATIENT
  Age: 48 Year
  Sex: Female

DRUGS (2)
  1. REMODULIN [Suspect]
     Active Substance: TREPROSTINIL
     Indication: Pulmonary arterial hypertension
  2. OPSUMIT 10MG JNJ [Concomitant]
     Dosage: FREQUENCY : DAILY;?
     Route: 048
     Dates: start: 202204

REACTIONS (4)
  - Incorrect dose administered [None]
  - Incorrect drug administration rate [None]
  - Accidental overdose [None]
  - Adverse event [None]

NARRATIVE: CASE EVENT DATE: 20220527
